FAERS Safety Report 8347584-9 (Version None)
Quarter: 2012Q2

REPORT INFORMATION
  Report Type: 
  Country: None (occurrence: None)
  Receive Date: 20120509
  Receipt Date: 20120427
  Transmission Date: 20120825
  Serious: Yes (Hospitalization, Other)
  Sender: FDA-Public Use
  Company Number: CH-BRISTOL-MYERS SQUIBB COMPANY-16524324

PATIENT
  Age: 67 Year
  Sex: Male

DRUGS (1)
  1. YERVOY [Suspect]
     Indication: MALIGNANT MELANOMA
     Dosage: 250 MG, JANUARY 31, FEBRUARY 21 AND MARCH 13
     Route: 042
     Dates: start: 20120110, end: 20120313

REACTIONS (3)
  - PERITONITIS [None]
  - JEJUNAL PERFORATION [None]
  - DIARRHOEA [None]
